FAERS Safety Report 21856639 (Version 1)
Quarter: 2023Q1

REPORT INFORMATION
  Report Type: Spontaneous
  Country: IN (occurrence: IN)
  Receive Date: 20230113
  Receipt Date: 20230113
  Transmission Date: 20230417
  Serious: Yes (Other)
  Sender: FDA-Public Use
  Company Number: IN-STRIDES ARCOLAB LIMITED-2023SP000615

PATIENT
  Age: 30 Year
  Sex: Female

DRUGS (3)
  1. ITRACONAZOLE [Suspect]
     Active Substance: ITRACONAZOLE
     Indication: Tinea cruris
     Dosage: 100 MILLIGRAM, BID, CAPSULE
     Route: 065
  2. ITRACONAZOLE [Suspect]
     Active Substance: ITRACONAZOLE
     Dosage: UNK, CAPSULE (RESTARTED)
     Route: 065
  3. LULICONAZOLE [Concomitant]
     Active Substance: LULICONAZOLE
     Indication: Tinea cruris
     Dosage: UNK
     Route: 061

REACTIONS (3)
  - Vaginal haemorrhage [Recovered/Resolved]
  - Intermenstrual bleeding [Recovered/Resolved]
  - Off label use [Unknown]
